FAERS Safety Report 4582441-5 (Version None)
Quarter: 2005Q1

REPORT INFORMATION
  Report Type: 
  Country: None (occurrence: None)
  Receive Date: 20050127
  Receipt Date: 20040423
  Transmission Date: 20050727
  Serious: Yes (Life-Threatening, Hospitalization)
  Sender: FDA-Public Use
  Company Number: 345215

PATIENT

DRUGS (6)
  1. TORADOL [Suspect]
     Dates: end: 20030805
  2. COUMADIN [Suspect]
     Dosage: ORAL
     Route: 048
  3. HEPARIN [Suspect]
     Dosage: SUBCUTANEOUS
     Route: 058
  4. CIPRO [Suspect]
     Dosage: 2 PER DAY ORAL
     Route: 048
     Dates: end: 20030802
  5. FLAGYL [Suspect]
     Dosage: 2 PER DAY ORAL
     Route: 048
     Dates: end: 20030802
  6. PAXIL [Suspect]
     Dosage: 9 PER DAY ORAL
     Route: 048
     Dates: end: 20030802

REACTIONS (2)
  - DRUG INTERACTION [None]
  - GASTROINTESTINAL HAEMORRHAGE [None]
